FAERS Safety Report 5690640-4 (Version None)
Quarter: 2008Q2

REPORT INFORMATION
  Report Type: 
  Country: None (occurrence: None)
  Receive Date: 20080401
  Receipt Date: 20080326
  Transmission Date: 20081010
  Serious: Yes (Hospitalization)
  Sender: FDA-Public Use
  Company Number: GB-JNJFOC-20080306956

PATIENT
  Age: 46 Year
  Sex: Male

DRUGS (5)
  1. HALOPERIDOL [Interacting]
     Indication: STRESS
     Route: 048
  2. HALOPERIDOL [Interacting]
     Indication: AGITATION
     Route: 048
  3. ABILIFY [Suspect]
     Indication: SCHIZOPHRENIA
     Route: 048
  4. DEPAKOTE [Concomitant]
     Indication: MANIA
     Route: 065
  5. SERTRALINE [Concomitant]
     Indication: DEPRESSION
     Route: 048

REACTIONS (2)
  - DRUG INEFFECTIVE [None]
  - DRUG INTERACTION [None]
